FAERS Safety Report 5800889-5 (Version None)
Quarter: 2008Q3

REPORT INFORMATION
  Report Type: 
  Country: None (occurrence: None)
  Receive Date: 20080701
  Receipt Date: 20080613
  Transmission Date: 20090109
  Serious: Yes (Life-Threatening)
  Sender: FDA-Public Use
  Company Number: OMX-2008-00022

PATIENT
  Age: 49 Year
  Sex: Female

DRUGS (3)
  1. QUXIL (1ML) (FACTOR I (FIBRINOGEN) ) [Suspect]
     Indication: KNEE ARTHROPLASTY
     Dosage: NEBULIZED ON BONE
     Dates: start: 20080428, end: 20080428
  2. BUPIVACAINA (BUPIVACAINE HYDROCHLORIDE) (0.5 %, SOLUTION FOR INFUSION) [Concomitant]
  3. DIPRIVAN [Concomitant]

REACTIONS (12)
  - ACTIVATED PARTIAL THROMBOPLASTIN TIME PROLONGED [None]
  - BRAIN OEDEMA [None]
  - CARDIAC ARREST [None]
  - CEREBRAL INFARCTION [None]
  - CEREBRAL ISCHAEMIA [None]
  - COMA [None]
  - HYPOTENSION [None]
  - HYPOVOLAEMIA [None]
  - PROCEDURAL COMPLICATION [None]
  - PROTHROMBIN TIME PROLONGED [None]
  - PULMONARY EMBOLISM [None]
  - RESPIRATORY DISORDER [None]
